FAERS Safety Report 23203223 (Version 1)
Quarter: 2023Q4

REPORT INFORMATION
  Report Type: Spontaneous
  Country: US (occurrence: None)
  Receive Date: 20231119
  Receipt Date: 20231119
  Transmission Date: 20240110
  Serious: Yes (Other)
  Sender: FDA-Public Use
  Company Number: None

PATIENT
  Age: 40 Year
  Sex: Female
  Weight: 90.45 kg

DRUGS (1)
  1. NEOSPORIN [Suspect]
     Active Substance: BACITRACIN ZINC\NEOMYCIN SULFATE\POLYMYXIN B SULFATE
     Indication: Skin laceration
     Dosage: FREQUENCY : TWICE A DAY;?
     Route: 061
     Dates: start: 20170718, end: 20170720

REACTIONS (3)
  - Product use issue [None]
  - Infection [None]
  - Drug hypersensitivity [None]

NARRATIVE: CASE EVENT DATE: 20170718
